FAERS Safety Report 6656099-5 (Version None)
Quarter: 2010Q1

REPORT INFORMATION
  Report Type: 
  Country: None (occurrence: None)
  Receive Date: 20100329
  Receipt Date: 20100323
  Transmission Date: 20100710
  Serious: Yes (Hospitalization)
  Sender: FDA-Public Use
  Company Number: B0637808A

PATIENT
  Sex: Male

DRUGS (4)
  1. TELZIR [Suspect]
     Indication: HIV INFECTION
     Dosage: 700MG PER DAY
     Route: 048
     Dates: start: 20050101, end: 20091201
  2. TRUVADA [Suspect]
     Indication: HIV INFECTION
     Route: 065
     Dates: start: 20050101
  3. EFFORTIL [Concomitant]
     Route: 048
  4. IDROPLURIVIT [Concomitant]
     Route: 048

REACTIONS (2)
  - CRYPTOGENIC CIRRHOSIS [None]
  - WEIGHT DECREASED [None]
